FAERS Safety Report 24557622 (Version 1)
Quarter: 2024Q4

REPORT INFORMATION
  Report Type: Spontaneous
  Country: IT (occurrence: IT)
  Receive Date: 20241028
  Receipt Date: 20241028
  Transmission Date: 20250114
  Serious: Yes (Death, Hospitalization, Other)
  Sender: MYLAN
  Company Number: IT-Zuellig Korea-ATNAHS20241002893

PATIENT
  Age: 5 Decade
  Sex: Male

DRUGS (3)
  1. DIAZEPAM [Interacting]
     Active Substance: DIAZEPAM
     Indication: Product used for unknown indication
     Dosage: UNK
     Route: 065
  2. MIRTAZAPINE [Interacting]
     Active Substance: MIRTAZAPINE
     Indication: Product used for unknown indication
     Dosage: UNK
     Route: 065
  3. TRAMADOL [Interacting]
     Active Substance: TRAMADOL
     Indication: Product used for unknown indication
     Dosage: UNK
     Route: 065

REACTIONS (7)
  - Brain oedema [Fatal]
  - Pulmonary congestion [Fatal]
  - Pulmonary oedema [Fatal]
  - Visceral congestion [Fatal]
  - Toxicity to various agents [Fatal]
  - Drug interaction [Fatal]
  - Overdose [Fatal]
